FAERS Safety Report 7564696-8 (Version None)
Quarter: 2011Q2

REPORT INFORMATION
  Report Type: 
  Country: None (occurrence: None)
  Receive Date: 20110622
  Receipt Date: 20100907
  Transmission Date: 20111010
  Serious: Yes (Death)
  Sender: FDA-Public Use
  Company Number: US-MYLANLABS-2010S1016438

PATIENT
  Age: 30 Year
  Sex: Male

DRUGS (5)
  1. DEPAKOTE [Concomitant]
  2. CLOZAPINE [Suspect]
     Route: 048
     Dates: end: 20100101
  3. TRAZODONE HCL [Concomitant]
  4. BENADRYL [Concomitant]
  5. EFFEXOR [Concomitant]

REACTIONS (1)
  - DEATH [None]
